FAERS Safety Report 9482177 (Version 1)
Quarter: 2013Q3

REPORT INFORMATION
  Report Type: Spontaneous
  Country: US (occurrence: US)
  Receive Date: 20130828
  Receipt Date: 20130828
  Transmission Date: 20140515
  Serious: No
  Sender: FDA-Public Use
  Company Number: US-JNJFOC-20130810407

PATIENT
  Age: 59 Year
  Sex: Male
  Weight: 102.06 kg

DRUGS (7)
  1. UNSPECIFIED FENTANYL TRANSDERMAL SYSTEM [Suspect]
     Indication: PAIN
     Route: 062
     Dates: start: 2013, end: 2013
  2. UNSPECIFIED FENTANYL TRANSDERMAL SYSTEM [Suspect]
     Indication: PAIN
     Route: 062
     Dates: start: 2013, end: 201308
  3. UNSPECIFIED FENTANYL TRANSDERMAL SYSTEM [Suspect]
     Indication: PAIN
     Route: 062
     Dates: start: 2013, end: 2013
  4. UNSPECIFIED FENTANYL TRANSDERMAL SYSTEM [Suspect]
     Indication: PAIN
     Route: 062
     Dates: start: 2013, end: 2013
  5. DURAGESIC [Suspect]
     Indication: PAIN
     Route: 062
     Dates: start: 20130817
  6. GABAPENTIN [Concomitant]
     Indication: NEUROPATHY PERIPHERAL
     Route: 048
     Dates: start: 2012
  7. ALEVE [Concomitant]
     Indication: PAIN
     Route: 065

REACTIONS (5)
  - Adverse event [Recovered/Resolved]
  - Inappropriate schedule of drug administration [Recovered/Resolved]
  - Inadequate analgesia [Recovered/Resolved]
  - Wrong technique in drug usage process [Not Recovered/Not Resolved]
  - Product quality issue [Unknown]
